FAERS Safety Report 7753950 (Version 3)
Quarter: 2013Q1

REPORT INFORMATION
  Report Type: Spontaneous
  Country: US (occurrence: US)
  Receive Date: 20110110
  Receipt Date: 20130312
  Transmission Date: 20140127
  Serious: Yes (Death)
  Sender: FDA-Public Use
  Company Number: US-GENZYME-CERZ-1001752

PATIENT
  Sex: Male
  Weight: 64.85 kg

DRUGS (1)
  1. CEREZYME [Suspect]
     Indication: GAUCHER^S DISEASE
     Dosage: 5500 U/KG, Q2W
     Route: 042
     Dates: start: 20040407, end: 200909

REACTIONS (1)
  - Pancreatic carcinoma metastatic [Fatal]
